FAERS Safety Report 4951984-4 (Version None)
Quarter: 2006Q1

REPORT INFORMATION
  Report Type: 
  Country: None (occurrence: None)
  Receive Date: 20060320
  Receipt Date: 20060309
  Transmission Date: 20060701
  Serious: Yes (Other)
  Sender: FDA-Public Use
  Company Number: 2006033693

PATIENT
  Age: 48 Year
  Sex: Female

DRUGS (3)
  1. LIPITOR [Suspect]
     Indication: BLOOD CHOLESTEROL INCREASED
     Dosage: 20MG (20 MG, 1 IN 1D ), ORAL
     Route: 048
  2. INDREAL-LA (PROPRANOLOL HYDROCHLORIDE) [Concomitant]
  3. LANSOPRAZOLE [Concomitant]

REACTIONS (1)
  - PETIT MAL EPILEPSY [None]
